FAERS Safety Report 18108931 (Version 1)
Quarter: 2020Q3

REPORT INFORMATION
  Report Type: Spontaneous
  Country: US (occurrence: US)
  Receive Date: 20200804
  Receipt Date: 20200804
  Transmission Date: 20201103
  Serious: No
  Sender: FDA-Public Use
  Company Number: US-PFIZER INC-2020291434

PATIENT
  Age: 81 Year
  Sex: Female
  Weight: 57.15 kg

DRUGS (2)
  1. FORTEO [Concomitant]
     Active Substance: TERIPARATIDE
     Indication: BONE DISORDER
     Dosage: 20 UG, DAILY (20MCG INJECTION INTO STOMACH EVERY MORNING)
     Dates: start: 2019
  2. CELEBREX [Suspect]
     Active Substance: CELECOXIB
     Indication: OSTEOPOROSIS
     Dosage: 200 MG, DAILY (200MG BY MOUTH EACH DAY)
     Route: 048

REACTIONS (1)
  - Visual impairment [Unknown]
